FAERS Safety Report 6900103-3 (Version None)
Quarter: 2010Q3

REPORT INFORMATION
  Report Type: 
  Country: None (occurrence: None)
  Receive Date: 20100708
  Receipt Date: 20100324
  Transmission Date: 20110219
  Serious: Yes (Other)
  Sender: FDA-Public Use
  Company Number: 2010038507

PATIENT
  Sex: Female

DRUGS (2)
  1. CHANTIX [Suspect]
  2. ZYBAN [Suspect]

REACTIONS (3)
  - DRUG HYPERSENSITIVITY [None]
  - DRUG INTOLERANCE [None]
  - MALAISE [None]
